FAERS Safety Report 4793766-2 (Version None)
Quarter: 2005Q4

REPORT INFORMATION
  Report Type: 
  Country: None (occurrence: None)
  Receive Date: 20051011
  Receipt Date: 20050929
  Transmission Date: 20060501
  Serious: Yes (Other)
  Sender: FDA-Public Use
  Company Number: US-JNJFOC-20050802625

PATIENT
  Sex: Female
  Weight: 77.11 kg

DRUGS (5)
  1. REMICADE [Suspect]
     Dosage: THIRD INFUSION
     Route: 042
  2. REMICADE [Suspect]
     Route: 042
  3. REMICADE [Suspect]
     Indication: CROHN'S DISEASE
     Route: 042
  4. TYLENOL (CAPLET) [Concomitant]
  5. CELEBREX [Concomitant]

REACTIONS (4)
  - CLUMSINESS [None]
  - CROHN'S DISEASE [None]
  - HYPOAESTHESIA [None]
  - PARAESTHESIA [None]
